FAERS Safety Report 8376760-4 (Version None)
Quarter: 2012Q2

REPORT INFORMATION
  Report Type: 
  Country: None (occurrence: None)
  Receive Date: 20120522
  Receipt Date: 20120131
  Transmission Date: 20120825
  Serious: No
  Sender: FDA-Public Use
  Company Number: US-BRISTOL-MYERS SQUIBB COMPANY-16353047

PATIENT
  Age: 79 Year
  Sex: Male
  Weight: 80 kg

DRUGS (2)
  1. ONGLYZA [Suspect]
     Indication: DIABETES MELLITUS
     Dosage: DOSE REDUCED TO 2.5MG
     Route: 048
     Dates: start: 20101105, end: 20120117
  2. PLAVIX [Suspect]
     Dates: start: 20080101

REACTIONS (3)
  - PRURITUS [None]
  - JOINT SWELLING [None]
  - GASTROINTESTINAL DISORDER [None]
